FAERS Safety Report 5657118-5 (Version None)
Quarter: 2008Q1

REPORT INFORMATION
  Report Type: 
  Country: None (occurrence: None)
  Receive Date: 20080310
  Receipt Date: 20080225
  Transmission Date: 20080703
  Serious: Yes (Hospitalization)
  Sender: FDA-Public Use
  Company Number: FR-JNJFOC-20080301799

PATIENT
  Sex: Male

DRUGS (3)
  1. IXPRIM [Suspect]
     Indication: NEURALGIA
     Route: 048
  2. LYRICA [Suspect]
     Indication: NEURALGIA
     Route: 048
     Dates: start: 20071004, end: 20071009
  3. XATRAL [Concomitant]
     Indication: BENIGN PROSTATIC HYPERPLASIA
     Route: 065

REACTIONS (6)
  - AGRANULOCYTOSIS [None]
  - ANAL ULCER [None]
  - BONE MARROW FAILURE [None]
  - HYPOGAMMAGLOBULINAEMIA [None]
  - SEPSIS [None]
  - THROMBOCYTOPENIA [None]
